FAERS Safety Report 9453786 (Version 2)
Quarter: 2013Q3

REPORT INFORMATION
  Report Type: Spontaneous
  Country: US (occurrence: None)
  Receive Date: 20130807
  Receipt Date: 20130809
  Transmission Date: 20140515
  Serious: Yes (Hospitalization)
  Sender: FDA-Public Use
  Company Number: USA/USA/13/0033635

PATIENT
  Age: 74 Year
  Sex: Male

DRUGS (10)
  1. FONDAPARINUX SODIUM [Suspect]
     Indication: THROMBOSIS
  2. METOPROLOL SUCCINATE (METOPROLOL SUCCINATE) [Concomitant]
  3. GEMCITABINE (GEMCITABINE) [Concomitant]
  4. HYDROMORPHONE (HYDROMORPHONE) [Concomitant]
  5. METOCLOPRAMIDE (METOCLOPRAMIDE) [Concomitant]
  6. CHLORPROMAZINE (CHLORPROMAZINE) [Concomitant]
  7. FUROSEMIDE (FUROSEMIDE) [Concomitant]
  8. LISINOPRIL (LISINOPRIL) [Concomitant]
  9. BENZONATATE (BENZONATATE) [Concomitant]
  10. LEVITRA (VARDENAFIL HYDROCHLORIDE) [Concomitant]

REACTIONS (4)
  - Local swelling [None]
  - Local swelling [None]
  - Asthenia [None]
  - Product quality issue [None]
